FAERS Safety Report 5681986-4 (Version None)
Quarter: 2008Q1

REPORT INFORMATION
  Report Type: 
  Country: None (occurrence: None)
  Receive Date: 20080327
  Receipt Date: 20070330
  Transmission Date: 20080703
  Serious: No
  Sender: FDA-Public Use
  Company Number: US-BAYER-US-2007-011534

PATIENT
  Age: 31 Year
  Sex: Female
  Weight: 60 kg

DRUGS (1)
  1. MIRENA [Suspect]

REACTIONS (7)
  - ABDOMINAL DISTENSION [None]
  - ACNE [None]
  - DEPRESSION [None]
  - FATIGUE [None]
  - NIGHT SWEATS [None]
  - PANIC ATTACK [None]
  - RASH [None]
